FAERS Safety Report 8594646-7 (Version None)
Quarter: 2012Q3

REPORT INFORMATION
  Report Type: 
  Country: None (occurrence: None)
  Receive Date: 20120815
  Receipt Date: 20120809
  Transmission Date: 20120928
  Serious: No
  Sender: FDA-Public Use
  Company Number: US-PFIZER INC-2012194936

PATIENT
  Age: 52 Year
  Sex: Female
  Weight: 61.678 kg

DRUGS (1)
  1. PREMARIN [Suspect]
     Indication: VULVOVAGINAL DRYNESS
     Dosage: UNK, (1-2 TIMES A WEEK)
     Route: 067
     Dates: end: 20120802

REACTIONS (1)
  - VULVOVAGINAL RASH [None]
